FAERS Safety Report 4542366-8 (Version None)
Quarter: 2004Q4

REPORT INFORMATION
  Report Type: 
  Country: None (occurrence: None)
  Receive Date: 20041229
  Receipt Date: 20041214
  Transmission Date: 20050328
  Serious: Yes (Hospitalization, Disabling)
  Sender: FDA-Public Use
  Company Number: GXKR2004MA00637

PATIENT
  Age: 7 Year
  Sex: Female

DRUGS (3)
  1. AMOXICILLIN [Suspect]
     Indication: UPPER RESPIRATORY TRACT INFECTION
     Dosage: ORAL
     Route: 048
  2. AMOXICILLIN+CLAVULANATE (NGX) (AMOXICILLIN, CLAVULANATE) [Suspect]
     Indication: UPPER RESPIRATORY TRACT INFECTION
  3. FLUCLOXACILLIN (FLUCLOXACILLIN) [Suspect]
     Indication: UPPER RESPIRATORY TRACT INFECTION

REACTIONS (10)
  - HAND AMPUTATION [None]
  - LEUKOCYTOCLASTIC VASCULITIS [None]
  - NECROSIS [None]
  - OEDEMA PERIPHERAL [None]
  - PERIPHERAL ISCHAEMIA [None]
  - PULMONARY HAEMORRHAGE [None]
  - RASH MACULO-PAPULAR [None]
  - RASH PRURITIC [None]
  - RENAL IMPAIRMENT [None]
  - SEPSIS [None]
